FAERS Safety Report 6271228-3 (Version None)
Quarter: 2009Q3

REPORT INFORMATION
  Report Type: 
  Country: None (occurrence: None)
  Receive Date: 20090717
  Receipt Date: 20090709
  Transmission Date: 20100115
  Serious: Yes (Hospitalization, Other)
  Sender: FDA-Public Use
  Company Number: JP-JNJFOC-20090701029

PATIENT
  Sex: Female

DRUGS (9)
  1. CRAVIT [Suspect]
     Indication: PHARYNGITIS
     Route: 048
  2. OLMETEC [Suspect]
     Indication: HYPERTENSION
     Route: 048
  3. PONTAL [Suspect]
     Indication: DRUG USE FOR UNKNOWN INDICATION
     Route: 048
  4. NORMONAL [Suspect]
     Route: 048
  5. NORMONAL [Suspect]
     Indication: HYPERTENSION
     Route: 048
  6. SAWATENE [Concomitant]
     Indication: DRUG USE FOR UNKNOWN INDICATION
     Route: 048
  7. ASVERIN [Concomitant]
     Indication: DRUG USE FOR UNKNOWN INDICATION
     Route: 048
  8. GRIMAC [Concomitant]
     Indication: DRUG USE FOR UNKNOWN INDICATION
     Route: 048
  9. SODIUM GUALENATE [Concomitant]
     Indication: DRUG USE FOR UNKNOWN INDICATION
     Dosage: AS NEEDED
     Route: 065

REACTIONS (6)
  - BLOOD PRESSURE INCREASED [None]
  - CONVULSION [None]
  - LOSS OF CONSCIOUSNESS [None]
  - MEMORY IMPAIRMENT [None]
  - RENAL IMPAIRMENT [None]
  - SOMNOLENCE [None]
